FAERS Safety Report 5440595-2 (Version None)
Quarter: 2007Q3

REPORT INFORMATION
  Report Type: 
  Country: None (occurrence: None)
  Receive Date: 20070831
  Receipt Date: 20070821
  Transmission Date: 20080115
  Serious: Yes (Hospitalization)
  Sender: FDA-Public Use
  Company Number: FR-ABBOTT-07P-056-0378497-00

PATIENT
  Age: 74 Year
  Sex: Female

DRUGS (9)
  1. DEPAKOTE [Suspect]
     Indication: BIPOLAR I DISORDER
     Route: 048
     Dates: start: 20070607, end: 20070701
  2. DEPAKOTE [Suspect]
     Indication: HYPOMANIA
     Route: 048
     Dates: start: 20070701, end: 20070701
  3. DEPAKOTE [Suspect]
     Route: 048
     Dates: start: 20070701, end: 20070701
  4. DEPAKOTE [Suspect]
     Route: 048
     Dates: start: 20070720, end: 20070723
  5. DEPAKOTE [Suspect]
     Dates: start: 20070724
  6. DEPAKOTE [Suspect]
  7. CYAMEMAZINE [Suspect]
     Indication: BIPOLAR I DISORDER
     Route: 048
     Dates: start: 20070607, end: 20070622
  8. CYAMEMAZINE [Suspect]
     Route: 048
     Dates: start: 20070622, end: 20070622
  9. PRAZEPAM [Concomitant]
     Indication: HYPOMANIA

REACTIONS (15)
  - AFFECT LABILITY [None]
  - APRAXIA [None]
  - BALANCE DISORDER [None]
  - CONFUSIONAL STATE [None]
  - DISORIENTATION [None]
  - DRUG LEVEL INCREASED [None]
  - DYSARTHRIA [None]
  - ENCEPHALOPATHY [None]
  - HYPOALBUMINAEMIA [None]
  - HYPOMANIA [None]
  - INFECTION [None]
  - OVERDOSE [None]
  - PERSEVERATION [None]
  - PSYCHOMOTOR SKILLS IMPAIRED [None]
  - SOMNOLENCE [None]
